FAERS Safety Report 16388345 (Version 1)
Quarter: 2019Q2

REPORT INFORMATION
  Report Type: Spontaneous
  Country: US (occurrence: US)
  Receive Date: 20190604
  Receipt Date: 20190604
  Transmission Date: 20190711
  Serious: No
  Sender: FDA-Public Use
  Company Number: US-PFIZER INC-2019235010

PATIENT
  Age: 62 Year
  Sex: Female
  Weight: 67.13 kg

DRUGS (2)
  1. CHANTIX [Suspect]
     Active Substance: VARENICLINE TARTRATE
     Dosage: 1 MG, UNK (DOSAGE STARTED AS GREEN .5 MG TABLETS AND WENT TO BLUE 1 MG TABLETS)
     Route: 048
  2. CHANTIX [Suspect]
     Active Substance: VARENICLINE TARTRATE
     Indication: SMOKING CESSATION THERAPY
     Dosage: 0.5 MG, UNK (DOSAGE STARTED AS GREEN .5 MG TABLETS AND WENT TO BLUE 1 MG TABLETS)
     Route: 048

REACTIONS (3)
  - Atrioventricular block [Unknown]
  - Drug ineffective [Unknown]
  - Cardiac disorder [Unknown]
